FAERS Safety Report 23530696 (Version 1)
Quarter: 2024Q1

REPORT INFORMATION
  Report Type: Report from Study
  Country: US (occurrence: US)
  Receive Date: 20240216
  Receipt Date: 20240216
  Transmission Date: 20240409
  Serious: Yes (Other)
  Sender: FDA-Public Use
  Company Number: US-ABBVIE-5626569

PATIENT
  Sex: Female
  Weight: 55.338 kg

DRUGS (1)
  1. IMBRUVICA [Suspect]
     Active Substance: IBRUTINIB
     Indication: Waldenstrom^s macroglobulinaemia
     Route: 048
     Dates: start: 201404

REACTIONS (2)
  - Pain in extremity [Recovered/Resolved]
  - Onychomycosis [Recovering/Resolving]

NARRATIVE: CASE EVENT DATE: 20230101
